FAERS Safety Report 6705028-4 (Version None)
Quarter: 2010Q2

REPORT INFORMATION
  Report Type: 
  Country: None (occurrence: None)
  Receive Date: 20100430
  Receipt Date: 20100423
  Transmission Date: 20101027
  Serious: Yes (Hospitalization)
  Sender: FDA-Public Use
  Company Number: B0639679A

PATIENT
  Age: 81 Year
  Sex: Female

DRUGS (8)
  1. PAXIL [Suspect]
     Indication: DEPRESSION
     Dosage: 10MG PER DAY
     Route: 048
     Dates: start: 20100125, end: 20100202
  2. METLIGINE [Concomitant]
     Indication: DIZZINESS
     Route: 048
     Dates: start: 20100123
  3. GAMOFA [Concomitant]
     Dosage: 20MG PER DAY
     Route: 048
     Dates: end: 20100131
  4. PROMAC [Concomitant]
     Dosage: 150MG PER DAY
     Route: 048
     Dates: end: 20100131
  5. CALFINA [Concomitant]
     Dosage: .5MG PER DAY
     Route: 048
     Dates: end: 20100131
  6. MIYA BM [Concomitant]
     Route: 048
     Dates: end: 20100131
  7. MAGMITT [Concomitant]
     Dosage: 250MG PER DAY
     Route: 048
     Dates: end: 20100131
  8. CHINESE MEDICINE [Concomitant]
     Dosage: 45MG PER DAY
     Route: 048

REACTIONS (9)
  - BLOOD PRESSURE FLUCTUATION [None]
  - CHOKING [None]
  - DECREASED APPETITE [None]
  - DEPRESSED LEVEL OF CONSCIOUSNESS [None]
  - DISCOMFORT [None]
  - FEELING ABNORMAL [None]
  - HYPONATRAEMIA [None]
  - SOMNOLENCE [None]
  - VOMITING [None]
